FAERS Safety Report 7532583-7 (Version None)
Quarter: 2011Q2

REPORT INFORMATION
  Report Type: 
  Country: None (occurrence: None)
  Receive Date: 20110608
  Receipt Date: 20110530
  Transmission Date: 20111010
  Serious: Yes (Other)
  Sender: FDA-Public Use
  Company Number: PHHY2011CA47892

PATIENT
  Age: 16 Year
  Sex: Female
  Weight: 64 kg

DRUGS (4)
  1. SIMVASTATIN [Concomitant]
     Dosage: UNK
  2. ENALAPRIL MALEATE [Suspect]
     Indication: ALPORT'S SYNDROME
     Dosage: 0.8 MG/KG, UNK
  3. ALISKIREN [Suspect]
     Indication: ALPORT'S SYNDROME
     Dosage: 2.4 MG/KG/DAY
  4. LOSARTAN POTASSIUM/HYDROCHLOROTHIAZIDE [Suspect]
     Indication: ALPORT'S SYNDROME
     Dosage: 0.4/0.8 MG/KG, UNK

REACTIONS (3)
  - BLOOD CREATININE INCREASED [None]
  - HYPERKALAEMIA [None]
  - RENAL IMPAIRMENT [None]
